FAERS Safety Report 6607520-X (Version None)
Quarter: 2010Q1

REPORT INFORMATION
  Report Type: 
  Country: None (occurrence: None)
  Receive Date: 20100301
  Receipt Date: 20100217
  Transmission Date: 20100710
  Serious: Yes (Other)
  Sender: FDA-Public Use
  Company Number: PHHY2010US10255

PATIENT
  Sex: Female

DRUGS (2)
  1. EXJADE [Suspect]
     Dosage: 1000 MG, QD
     Route: 048
  2. VICOPROFEN [Concomitant]

REACTIONS (5)
  - ASTHENIA [None]
  - DYSSTASIA [None]
  - FALL [None]
  - HYPERHIDROSIS [None]
  - SYNCOPE [None]
